FAERS Safety Report 5899707-9 (Version None)
Quarter: 2008Q3

REPORT INFORMATION
  Report Type: 
  Country: None (occurrence: None)
  Receive Date: 20080926
  Receipt Date: 20080902
  Transmission Date: 20090109
  Serious: Yes (Congenital Anomaly, Other)
  Sender: FDA-Public Use
  Company Number: US-PFIZER INC-2007095398

PATIENT
  Sex: Female
  Weight: 3.2 kg

DRUGS (1)
  1. ZOLOFT [Suspect]
     Indication: POSTPARTUM DEPRESSION
     Route: 064

REACTIONS (32)
  - AGITATION [None]
  - AORTIC DISORDER [None]
  - ATELECTASIS [None]
  - BODY TEMPERATURE INCREASED [None]
  - BRONCHITIS [None]
  - CAESAREAN SECTION [None]
  - CONGENITAL PULMONARY VALVE ATRESIA [None]
  - CYANOSIS [None]
  - DISCOMFORT [None]
  - DOUBLE OUTLET RIGHT VENTRICLE [None]
  - DRUG EXPOSURE DURING PREGNANCY [None]
  - DYSPHAGIA [None]
  - DYSPNOEA [None]
  - FEEDING DISORDER NEONATAL [None]
  - HEART DISEASE CONGENITAL [None]
  - HYPERTENSION [None]
  - HYPOPLASTIC RIGHT HEART SYNDROME [None]
  - INFLUENZA LIKE ILLNESS [None]
  - IRRITABILITY [None]
  - LARYNGEAL STENOSIS [None]
  - NASAL CONGESTION [None]
  - NEONATAL DISORDER [None]
  - PHARYNGITIS [None]
  - PLEURAL EFFUSION [None]
  - PSYCHOMOTOR SKILLS IMPAIRED [None]
  - PULMONARY VALVE STENOSIS [None]
  - PULMONARY VALVE STENOSIS CONGENITAL [None]
  - RHINORRHOEA [None]
  - SPEECH DISORDER DEVELOPMENTAL [None]
  - TRANSPOSITION OF THE GREAT VESSELS [None]
  - URINE ANALYSIS ABNORMAL [None]
  - VENTRICULAR SEPTAL DEFECT [None]
